FAERS Safety Report 18537978 (Version 1)
Quarter: 2020Q4

REPORT INFORMATION
  Report Type: Spontaneous
  Country: DE (occurrence: DE)
  Receive Date: 20201123
  Receipt Date: 20201123
  Transmission Date: 20210114
  Serious: Yes (Life-Threatening, Other)
  Sender: FDA-Public Use
  Company Number: DE-ASTRAZENECA-2020SF53937

PATIENT
  Age: 860 Month
  Sex: Female

DRUGS (10)
  1. PALBOCICLIB [Suspect]
     Active Substance: PALBOCICLIB
     Dosage: 125 MG/DAY 1-14 Q3W
     Route: 048
     Dates: start: 201711, end: 201908
  2. DENOSUMAB [Concomitant]
     Active Substance: DENOSUMAB
     Route: 065
     Dates: start: 201711, end: 201908
  3. TAMOXIFEN [Suspect]
     Active Substance: TAMOXIFEN
     Route: 048
     Dates: start: 201505, end: 201511
  4. EXEMESTANE. [Concomitant]
     Active Substance: EXEMESTANE
     Route: 048
     Dates: start: 201511, end: 201711
  5. BEVACIZUMAB. [Concomitant]
     Active Substance: BEVACIZUMAB
     Route: 042
     Dates: start: 201908, end: 202008
  6. XGEVA [Concomitant]
     Active Substance: DENOSUMAB
     Route: 042
     Dates: start: 201908, end: 202008
  7. EVEROLIMUS. [Concomitant]
     Active Substance: EVEROLIMUS
     Route: 048
     Dates: start: 201511, end: 201711
  8. ARIMIDEX [Suspect]
     Active Substance: ANASTROZOLE
     Route: 048
  9. FULVESTRANT. [Suspect]
     Active Substance: FULVESTRANT
     Route: 030
     Dates: start: 201711, end: 201908
  10. CAPECITABINE. [Concomitant]
     Active Substance: CAPECITABINE
     Dosage: 1250 MG/M2 DAY 1-14 EVERY THREE WEEKS
     Route: 065
     Dates: start: 201908, end: 202008

REACTIONS (8)
  - Hypothyroidism [Unknown]
  - Glaucoma [Unknown]
  - Hypertension [Unknown]
  - Aortic aneurysm [Unknown]
  - Metastases to lung [Unknown]
  - Metastases to liver [Unknown]
  - Atrial fibrillation [Unknown]
  - Metastases to bone [Unknown]

NARRATIVE: CASE EVENT DATE: 201501
